FAERS Safety Report 4765122-4 (Version None)
Quarter: 2005Q3

REPORT INFORMATION
  Report Type: 
  Country: None (occurrence: None)
  Receive Date: 20050906
  Receipt Date: 20050818
  Transmission Date: 20060218
  Serious: Yes (Life-Threatening, Hospitalization)
  Sender: FDA-Public Use
  Company Number: USA050699734

PATIENT
  Age: 23 Year
  Sex: Male

DRUGS (5)
  1. ZYPREXA [Suspect]
     Indication: SCHIZOPHRENIA
     Dosage: 40 MG DAY
     Dates: start: 20040110
  2. ZYPREXA [Suspect]
     Dosage: 20 MG DAY
     Dates: start: 20040821
  3. SEROQUEL [Concomitant]
  4. CLOZAPINE [Concomitant]
  5. DEPAKOTE [Concomitant]

REACTIONS (7)
  - ABNORMAL BEHAVIOUR [None]
  - BLOOD COUNT ABNORMAL [None]
  - DEPRESSION [None]
  - HEPATIC ENZYME INCREASED [None]
  - PULMONARY THROMBOSIS [None]
  - SLEEP DISORDER [None]
  - THINKING ABNORMAL [None]
